FAERS Safety Report 7629544-6 (Version None)
Quarter: 2011Q3

REPORT INFORMATION
  Report Type: 
  Country: None (occurrence: None)
  Receive Date: 20110722
  Receipt Date: 20110316
  Transmission Date: 20111222
  Serious: No
  Sender: FDA-Public Use
  Company Number: US-BAYER-2011-023532

PATIENT
  Age: 46 Year
  Sex: Female
  Weight: 52.608 kg

DRUGS (1)
  1. BETASERON [Suspect]
     Dosage: 0.3 MG, QOD
     Route: 058
     Dates: start: 20101103

REACTIONS (4)
  - RASH MACULAR [None]
  - INJECTION SITE REACTION [None]
  - PAIN [None]
  - SKIN DISCOLOURATION [None]
